FAERS Safety Report 6738436-6 (Version None)
Quarter: 2010Q2

REPORT INFORMATION
  Report Type: 
  Country: None (occurrence: None)
  Receive Date: 20100520
  Receipt Date: 20100505
  Transmission Date: 20101027
  Serious: Yes (Hospitalization, Other)
  Sender: FDA-Public Use
  Company Number: 2010AP000532

PATIENT
  Age: 37 Year
  Sex: Male

DRUGS (2)
  1. DESMOPRESSIN ACETATE [Suspect]
     Indication: DIABETES INSIPIDUS
     Dosage: 5 ML;1X; NAS
     Route: 045
     Dates: start: 20100301, end: 20100301
  2. GINKGO BILOBA [Concomitant]

REACTIONS (8)
  - AMNESIA [None]
  - COGNITIVE DISORDER [None]
  - COMA [None]
  - CONFUSIONAL STATE [None]
  - HYPONATRAEMIA [None]
  - MOOD ALTERED [None]
  - MOOD SWINGS [None]
  - OVERDOSE [None]
